FAERS Safety Report 5974850-4 (Version None)
Quarter: 2008Q4

REPORT INFORMATION
  Report Type: 
  Country: None (occurrence: None)
  Receive Date: 20081202
  Receipt Date: 20081127
  Transmission Date: 20090506
  Serious: Yes (Other)
  Sender: FDA-Public Use
  Company Number: JP-PFIZER INC-2008100986

PATIENT
  Age: 73 Year
  Sex: Female

DRUGS (3)
  1. ZOLOFT [Suspect]
     Route: 048
     Dates: start: 20081118
  2. TAKEPRON [Concomitant]
  3. ALOSENN [Concomitant]

REACTIONS (1)
  - RESPIRATORY RATE DECREASED [None]
